FAERS Safety Report 5988211-5 (Version None)
Quarter: 2008Q4

REPORT INFORMATION
  Report Type: 
  Country: None (occurrence: None)
  Receive Date: 20081204
  Receipt Date: 20081120
  Transmission Date: 20090506
  Serious: Yes (Death)
  Sender: FDA-Public Use
  Company Number: ALK_00749_2008

PATIENT
  Weight: 64.8644 kg

DRUGS (1)
  1. VIVITROL [Suspect]
     Indication: DRUG USE FOR UNKNOWN INDICATION
     Dosage: 380 MG (FREQUENCY UNKNOWN)

REACTIONS (2)
  - ALCOHOLISM [None]
  - TREATMENT NONCOMPLIANCE [None]
